FAERS Safety Report 9712403 (Version 2)
Quarter: 2014Q2

REPORT INFORMATION
  Report Type: Spontaneous
  Country: US (occurrence: US)
  Receive Date: 20131126
  Receipt Date: 20140510
  Transmission Date: 20141212
  Serious: No
  Sender: FDA-Public Use
  Company Number: US-BRISTOL-MYERS SQUIBB COMPANY-18871558

PATIENT
  Age: 77 Year
  Sex: Male
  Weight: 90.7 kg

DRUGS (15)
  1. BYDUREON [Suspect]
     Indication: DIABETES MELLITUS
     Dosage: LOT:73483,EXPDT:APR16
     Route: 058
  2. METFORMIN [Concomitant]
  3. ACTOS [Concomitant]
  4. GLYBURIDE [Concomitant]
  5. CALCIUM [Concomitant]
     Dosage: PILL
  6. GLIMEPIRIDE [Concomitant]
  7. ASPIRIN [Concomitant]
     Dosage: 1DF:SMALL DOSE
  8. CARVEDILOL [Concomitant]
  9. SIMVASTATIN [Concomitant]
  10. LOSARTAN POTASSIUM + HCTZ [Concomitant]
     Dosage: EYE DROPS
     Route: 047
  11. BRIMONIDINE [Concomitant]
  12. LUMIGAN [Concomitant]
  13. ACETAZOLAMIDE [Concomitant]
  14. ALENDRONATE [Concomitant]
  15. CALCIUM [Concomitant]

REACTIONS (4)
  - Injection site nodule [Unknown]
  - Injection site mass [Unknown]
  - Weight increased [Unknown]
  - Injection site haemorrhage [Unknown]
